FAERS Safety Report 18543177 (Version 1)
Quarter: 2020Q4

REPORT INFORMATION
  Report Type: Report from Study
  Country: None (occurrence: SE)
  Receive Date: 20201125
  Receipt Date: 20201125
  Transmission Date: 20210114
  Serious: Yes (Other)
  Sender: FDA-Public Use
  Company Number: SE-ABBVIE-20K-150-3660638-00

PATIENT
  Age: 69 Year
  Sex: Female
  Weight: 54 kg

DRUGS (2)
  1. DUODOPA [Suspect]
     Active Substance: CARBIDOPA\LEVODOPA
     Dosage: M.D: 2 ML, C.D DAY: 4.0 ML/H, C.D NIGHT: 2.9 ML/H, E.D: 1.0 ML. REMAINED AT 24H
     Route: 050
     Dates: start: 20201119
  2. DUODOPA [Suspect]
     Active Substance: CARBIDOPA\LEVODOPA
     Indication: PARKINSON^S DISEASE
     Route: 050
     Dates: start: 20190423

REACTIONS (3)
  - Excessive granulation tissue [Not Recovered/Not Resolved]
  - Pain in extremity [Recovered/Resolved]
  - Spinal stenosis [Recovered/Resolved]
